FAERS Safety Report 18767976 (Version 1)
Quarter: 2021Q1

REPORT INFORMATION
  Report Type: Spontaneous
  Country: GB (occurrence: GB)
  Receive Date: 20210121
  Receipt Date: 20210121
  Transmission Date: 20210419
  Serious: Yes (Other)
  Sender: FDA-Public Use
  Company Number: GB-PFIZER INC-2021029483

PATIENT
  Age: 66 Year
  Sex: Female
  Weight: 65.31 kg

DRUGS (2)
  1. SERTRALINE HCL [Suspect]
     Active Substance: SERTRALINE HYDROCHLORIDE
     Indication: DEPRESSED MOOD
  2. SERTRALINE HCL [Suspect]
     Active Substance: SERTRALINE HYDROCHLORIDE
     Indication: ANXIETY
     Dosage: 50MG
     Route: 048
     Dates: start: 20201215

REACTIONS (5)
  - Feeling hot [Recovered/Resolved with Sequelae]
  - Hyperhidrosis [Recovered/Resolved with Sequelae]
  - Feeling abnormal [Recovered/Resolved with Sequelae]
  - Stress [Recovered/Resolved with Sequelae]
  - Sleep disorder [Recovered/Resolved with Sequelae]

NARRATIVE: CASE EVENT DATE: 20201216
